FAERS Safety Report 12806118 (Version 1)
Quarter: 2016Q4

REPORT INFORMATION
  Report Type: Spontaneous
  Country: US (occurrence: US)
  Receive Date: 20161004
  Receipt Date: 20161004
  Transmission Date: 20170207
  Serious: No
  Sender: FDA-Public Use
  Company Number: US-GLAXOSMITHKLINE-US2016GSK144586

PATIENT
  Sex: Female

DRUGS (2)
  1. LAMICTAL [Concomitant]
     Active Substance: LAMOTRIGINE
  2. LAMOTRIGINE. [Suspect]
     Active Substance: LAMOTRIGINE
     Indication: PRODUCT USED FOR UNKNOWN INDICATION

REACTIONS (1)
  - Urticaria [Unknown]
